FAERS Safety Report 8329619-2 (Version None)
Quarter: 2012Q2

REPORT INFORMATION
  Report Type: 
  Country: None (occurrence: None)
  Receive Date: 20120502
  Receipt Date: 20120430
  Transmission Date: 20120825
  Serious: No
  Sender: FDA-Public Use
  Company Number: US-PFIZER INC-2012106366

PATIENT
  Sex: Female
  Weight: 72.562 kg

DRUGS (2)
  1. NORVASC [Suspect]
     Indication: HYPERTENSION
     Dosage: 10 MG, ONCE A DAY
     Route: 048
     Dates: start: 20110101, end: 20120427
  2. ASPIRIN [Concomitant]
     Dosage: UNK

REACTIONS (3)
  - FEELING ABNORMAL [None]
  - DIZZINESS [None]
  - HEART RATE INCREASED [None]
